FAERS Safety Report 21625645 (Version 1)
Quarter: 2022Q4

REPORT INFORMATION
  Report Type: Other
  Country: US (occurrence: None)
  Receive Date: 20221122
  Receipt Date: 20221122
  Transmission Date: 20230113
  Serious: Yes (Hospitalization, Other)
  Sender: FDA-Public Use
  Company Number: US-ROCHE-3219848

PATIENT
  Age: 61 Year
  Sex: Female

DRUGS (1)
  1. OCREVUS [Suspect]
     Active Substance: OCRELIZUMAB
     Indication: Multiple sclerosis
     Dosage: YES; DATE OF TREATMENT : 21/JUN/2022, 04/JAN/2022, 20/JUL/2021, 22/FEB/2021
     Route: 065

REACTIONS (4)
  - COVID-19 [Recovered/Resolved]
  - Dizziness [Unknown]
  - Fall [Unknown]
  - Foot fracture [Recovered/Resolved]

NARRATIVE: CASE EVENT DATE: 20220724
